FAERS Safety Report 18579046 (Version 1)
Quarter: 2020Q4

REPORT INFORMATION
  Report Type: Spontaneous
  Country: US (occurrence: US)
  Receive Date: 20201203
  Receipt Date: 20201203
  Transmission Date: 20210114
  Serious: Yes (Life-Threatening)
  Sender: FDA-Public Use
  Company Number: None

PATIENT
  Age: 45 Year
  Sex: Female
  Weight: 69.3 kg

DRUGS (2)
  1. NICODERM CQ [Suspect]
     Active Substance: NICOTINE
  2. NICOTINE LOZENGES [Suspect]
     Active Substance: NICOTINE

REACTIONS (2)
  - Drug hypersensitivity [None]
  - Therapeutic product cross-reactivity [None]

NARRATIVE: CASE EVENT DATE: 20201108
